FAERS Safety Report 18703039 (Version 1)
Quarter: 2021Q1

REPORT INFORMATION
  Report Type: Spontaneous
  Country: US (occurrence: US)
  Receive Date: 20210105
  Receipt Date: 20210105
  Transmission Date: 20210419
  Serious: No
  Sender: FDA-Public Use
  Company Number: US-ELI_LILLY_AND_COMPANY-US201603000269

PATIENT
  Age: 59 Year
  Sex: Female

DRUGS (7)
  1. HUMALOG [Suspect]
     Active Substance: INSULIN LISPRO
     Indication: TYPE 2 DIABETES MELLITUS
     Dosage: 19 U, QD
     Route: 065
     Dates: start: 201511
  2. HUMALOG [Suspect]
     Active Substance: INSULIN LISPRO
     Dosage: 19 U, QD
     Route: 065
     Dates: start: 201511
  3. HUMALOG [Suspect]
     Active Substance: INSULIN LISPRO
     Dosage: 22 U, PRN (SLIDING SCALE)
     Route: 058
  4. HUMALOG [Suspect]
     Active Substance: INSULIN LISPRO
     Indication: TYPE 2 DIABETES MELLITUS
     Dosage: 19 U, QD
     Route: 065
     Dates: start: 201511
  5. INSULIN LISPRO [Suspect]
     Active Substance: INSULIN LISPRO
     Indication: TYPE 2 DIABETES MELLITUS
     Dosage: UNK UNK, UNKNOWN
     Route: 058
  6. HUMALOG [Suspect]
     Active Substance: INSULIN LISPRO
     Dosage: 19 U, QD
     Route: 065
     Dates: start: 201511
  7. LANTUS [Concomitant]
     Active Substance: INSULIN GLARGINE
     Indication: PRODUCT USED FOR UNKNOWN INDICATION

REACTIONS (5)
  - Tremor [Unknown]
  - Scratch [Unknown]
  - Product dose omission issue [Recovered/Resolved]
  - Product dose omission issue [Recovered/Resolved]
  - Skin injury [Unknown]

NARRATIVE: CASE EVENT DATE: 20160226
